FAERS Safety Report 11417475 (Version 1)
Quarter: 2015Q3

REPORT INFORMATION
  Report Type: Spontaneous
  Country: US (occurrence: US)
  Receive Date: 20150825
  Receipt Date: 20150825
  Transmission Date: 20151125
  Serious: No
  Sender: FDA-Public Use
  Company Number: US-PFIZER INC-2015271502

PATIENT
  Sex: Female

DRUGS (1)
  1. ADVIL [Suspect]
     Active Substance: IBUPROFEN
     Indication: PAIN
     Dosage: TAKING ONE IN THE MORNING AND ONE AT THE NIGHT AND SOMETIMES JUST ONE
     Dates: start: 201508

REACTIONS (5)
  - Musculoskeletal discomfort [Unknown]
  - Formication [Unknown]
  - Pruritus [Unknown]
  - Erythema [Unknown]
  - Chest discomfort [Unknown]
